FAERS Safety Report 9270572 (Version 2)
Quarter: 2013Q2

REPORT INFORMATION
  Report Type: Spontaneous
  Country: GR (occurrence: GR)
  Receive Date: 20130503
  Receipt Date: 20130617
  Transmission Date: 20140414
  Serious: No
  Sender: FDA-Public Use
  Company Number: GR-US-EMD SERONO, INC.-7208752

PATIENT
  Age: 39 Year
  Sex: Male

DRUGS (3)
  1. REBIF [Suspect]
     Indication: MULTIPLE SCLEROSIS
     Route: 058
     Dates: start: 2009, end: 201301
  2. REBIF [Suspect]
     Route: 058
     Dates: start: 201301, end: 20130522
  3. REBIF [Suspect]
     Route: 058
     Dates: start: 20130522

REACTIONS (3)
  - Plasma cell myeloma [Recovered/Resolved]
  - Electrophoresis protein abnormal [Recovered/Resolved]
  - Haematocrit decreased [Recovered/Resolved]
